FAERS Safety Report 8931053 (Version 1)
Quarter: 2012Q4

REPORT INFORMATION
  Report Type: 
  Country: US (occurrence: US)
  Receive Date: 20121128
  Receipt Date: 20121128
  Transmission Date: 20130627
  Serious: No
  Sender: FDA-Public Use
  Company Number: US-ASTRAZENECA-2012SE85426

PATIENT
  Age: 80 Year
  Sex: Male
  Weight: 74.8 kg

DRUGS (4)
  1. SEROQUEL [Suspect]
     Indication: HALLUCINATION
     Route: 048
     Dates: start: 201108
  2. SEROQUEL [Suspect]
     Indication: INSOMNIA
     Route: 048
     Dates: start: 201108
  3. SEROQUEL [Suspect]
     Indication: HALLUCINATION
     Route: 048
  4. SEROQUEL [Suspect]
     Indication: INSOMNIA
     Route: 048

REACTIONS (4)
  - Somnolence [Not Recovered/Not Resolved]
  - Somnolence [Unknown]
  - Fatigue [Not Recovered/Not Resolved]
  - Incorrect dose administered [Unknown]
